FAERS Safety Report 20549075 (Version 2)
Quarter: 2022Q2

REPORT INFORMATION
  Report Type: Report from Study
  Country: US (occurrence: None)
  Receive Date: 20220303
  Receipt Date: 20220607
  Transmission Date: 20220720
  Serious: Yes (Hospitalization)
  Sender: FDA-Public Use
  Company Number: US-ROCHE-3025197

PATIENT
  Age: 52 Year
  Sex: Female
  Weight: 103.3 kg

DRUGS (9)
  1. IPATASERTIB [Suspect]
     Active Substance: IPATASERTIB
     Indication: Neoplasm
     Dosage: DOSE LAST STUDY DRUG ADMIN PRIOR AE/SAE IS 400 MG ON 09/FEB/2022
     Route: 048
  2. ATEZOLIZUMAB [Suspect]
     Active Substance: ATEZOLIZUMAB
     Indication: Neoplasm
     Dosage: START DATE OF MOST RECENT DOSE OF ATEZOLIZUMAB ADMIN PRIOR AE/SAE IS 1200 MG ON 27/JAN/2022. ?END DA
     Route: 041
     Dates: start: 20220127
  3. WELLBUTRIN SR [Concomitant]
     Active Substance: BUPROPION HYDROCHLORIDE
     Indication: Anxiety
     Dosage: DOSE UNIT IS MG
     Route: 048
     Dates: start: 1998
  4. ZYRTEC [Concomitant]
     Active Substance: CETIRIZINE HYDROCHLORIDE
     Indication: Seasonal allergy
     Dosage: DOSE UNIT IS MG
     Route: 048
     Dates: start: 2000
  5. PROVENTIL HFA [Concomitant]
     Active Substance: ALBUTEROL SULFATE
     Indication: Asthma
     Dosage: DOSE UNIT IS UG
     Route: 055
     Dates: start: 2019
  6. HYDROCODONE [Concomitant]
     Active Substance: HYDROCODONE
     Indication: Pain
     Dosage: DOSE UNIT IS MG
     Route: 048
     Dates: start: 2019
  7. ACETAMINOPHEN [Concomitant]
     Active Substance: ACETAMINOPHEN
     Indication: Pain
     Dosage: DOSE UNIT IS MG
     Route: 048
     Dates: start: 2019
  8. TRIAMCINOLONE ACETONIDE [Concomitant]
     Active Substance: TRIAMCINOLONE ACETONIDE
     Indication: Rash
     Dosage: DOSE UNIT IS %
     Route: 061
     Dates: start: 20210726
  9. TEMAZEPAM [Concomitant]
     Active Substance: TEMAZEPAM
     Indication: Insomnia
     Dosage: DOSE UNIT IS MG
     Route: 048
     Dates: start: 2020

REACTIONS (1)
  - Acute kidney injury [Recovered/Resolved]

NARRATIVE: CASE EVENT DATE: 20220209
